FAERS Safety Report 15590221 (Version 1)
Quarter: 2018Q4

REPORT INFORMATION
  Report Type: Spontaneous
  Country: US (occurrence: US)
  Receive Date: 20181101
  Receipt Date: 20181101
  Transmission Date: 20190205
  Serious: Yes (Hospitalization)
  Sender: FDA-Public Use
  Company Number: None

PATIENT
  Age: 38 Year
  Sex: Female
  Weight: 64.9 kg

DRUGS (5)
  1. CYCLOPHOSPHAMIDE. [Suspect]
     Active Substance: CYCLOPHOSPHAMIDE
     Dates: end: 20181003
  2. CYTARABINE. [Suspect]
     Active Substance: CYTARABINE
     Dates: end: 20181012
  3. METHOTREXATE. [Suspect]
     Active Substance: METHOTREXATE
     Dates: end: 20181023
  4. ONCASPAR [Suspect]
     Active Substance: PEGASPARGASE
     Dates: end: 20181016
  5. VINCRISTINE SULFATE. [Suspect]
     Active Substance: VINCRISTINE SULFATE
     Dates: end: 20181023

REACTIONS (9)
  - Obesity [None]
  - CSF red blood cell count positive [None]
  - Intracranial hypotension [None]
  - Subdural haematoma [None]
  - Computerised tomogram abnormal [None]
  - CSF protein increased [None]
  - Anaemia [None]
  - Xanthochromia [None]
  - Pituitary enlargement [None]

NARRATIVE: CASE EVENT DATE: 20181023
